FAERS Safety Report 15762693 (Version 1)
Quarter: 2018Q4

REPORT INFORMATION
  Report Type: Spontaneous
  Country: JP (occurrence: JP)
  Receive Date: 20181226
  Receipt Date: 20181226
  Transmission Date: 20190205
  Serious: Yes (Hospitalization)
  Sender: FDA-Public Use
  Company Number: JP-DSJP-DSJ-2018-148566

PATIENT

DRUGS (2)
  1. OLMETEC OD [Suspect]
     Active Substance: OLMESARTAN MEDOXOMIL
     Indication: HYPERTENSION
     Dosage: 20MG/DAY
     Route: 048
     Dates: end: 20181112
  2. TAKELDA [Suspect]
     Active Substance: ASPIRIN\LANSOPRAZOLE
     Dosage: UNK
     Route: 065
     Dates: end: 20181105

REACTIONS (2)
  - Hyponatraemia [Recovered/Resolved]
  - Cerebral infarction [Recovered/Resolved]
